FAERS Safety Report 5587543-2 (Version None)
Quarter: 2007Q4

REPORT INFORMATION
  Report Type: 
  Country: None (occurrence: None)
  Receive Date: 20071210
  Receipt Date: 20070322
  Transmission Date: 20080405
  Serious: Yes (Other)
  Sender: FDA-Public Use
  Company Number: 2007023709

PATIENT
  Age: 33 Year
  Sex: Female
  Weight: 57.6 kg

DRUGS (1)
  1. ARTHROTEC [Suspect]
     Indication: INJURY
     Dosage: 150 MG (75 MG, 2 IN 1 D)

REACTIONS (4)
  - CHILLS [None]
  - HYPOAESTHESIA [None]
  - MENORRHAGIA [None]
  - NAUSEA [None]
